FAERS Safety Report 26113866 (Version 1)
Quarter: 2025Q4

REPORT INFORMATION
  Report Type: Spontaneous
  Country: US (occurrence: US)
  Receive Date: 20251202
  Receipt Date: 20251202
  Transmission Date: 20260119
  Serious: No
  Sender: PRASCO
  Company Number: US-Prasco Laboratories-PRAS20250395

PATIENT
  Sex: Female

DRUGS (6)
  1. ESTRADIOL [Suspect]
     Active Substance: ESTRADIOL
     Indication: Micturition urgency
     Dosage: PEA SIZED AMOUNT 3 NIGHTS A WEEK
     Route: 067
  2. ESTRADIOL [Suspect]
     Active Substance: ESTRADIOL
     Indication: Bladder pain
  3. ESTRADIOL [Suspect]
     Active Substance: ESTRADIOL
     Indication: Cystitis interstitial
  4. XANAX [Concomitant]
     Active Substance: ALPRAZOLAM
     Indication: Pollakiuria
     Dosage: UNKNOWN
  5. XANAX [Concomitant]
     Active Substance: ALPRAZOLAM
     Indication: Bladder pain
  6. XANAX [Concomitant]
     Active Substance: ALPRAZOLAM
     Indication: Cystitis interstitial

REACTIONS (7)
  - Bacterial vaginosis [Unknown]
  - Vulvovaginal discomfort [Unknown]
  - Vulvovaginal burning sensation [Unknown]
  - Expulsion of medication [Unknown]
  - Drug effective for unapproved indication [Unknown]
  - Off label use [Unknown]
  - Wrong technique in product usage process [Unknown]
